FAERS Safety Report 13465549 (Version 1)
Quarter: 2017Q2

REPORT INFORMATION
  Report Type: Report from Study
  Country: US (occurrence: US)
  Receive Date: 20170421
  Receipt Date: 20170421
  Transmission Date: 20170830
  Serious: No
  Sender: FDA-Public Use
  Company Number: US-AMGEN-USASL2017059894

PATIENT
  Sex: Male

DRUGS (1)
  1. ENBREL [Suspect]
     Active Substance: ETANERCEPT
     Indication: PSORIASIS
     Dosage: UNK
     Route: 065
     Dates: start: 2015

REACTIONS (3)
  - Sinus disorder [Not Recovered/Not Resolved]
  - Hypersensitivity [Not Recovered/Not Resolved]
  - Bronchitis chronic [Not Recovered/Not Resolved]

NARRATIVE: CASE EVENT DATE: 2015
